FAERS Safety Report 25753198 (Version 2)
Quarter: 2025Q4

REPORT INFORMATION
  Report Type: Report from Study
  Country: US (occurrence: US)
  Receive Date: 20250902
  Receipt Date: 20251205
  Transmission Date: 20260118
  Serious: Yes (Other)
  Sender: ABBVIE
  Company Number: US-ABBVIE-6441321

PATIENT
  Sex: Female

DRUGS (2)
  1. SKYRIZI [Suspect]
     Active Substance: RISANKIZUMAB-RZAA
     Indication: Psoriasis
     Route: 058
     Dates: start: 20240820
  2. SKYRIZI [Suspect]
     Active Substance: RISANKIZUMAB-RZAA
     Route: 058
     Dates: start: 202409

REACTIONS (6)
  - Cerebrovascular accident [Unknown]
  - Dizziness [Unknown]
  - Vertigo [Recovering/Resolving]
  - Stress [Unknown]
  - Depression [Not Recovered/Not Resolved]
  - Amnesia [Unknown]

NARRATIVE: CASE EVENT DATE: 20250101
